FAERS Safety Report 24850090 (Version 2)
Quarter: 2025Q3

REPORT INFORMATION
  Report Type: Report from Study
  Country: US (occurrence: US)
  Receive Date: 20250116
  Receipt Date: 20250803
  Transmission Date: 20251021
  Serious: Yes (Other)
  Sender: ALEXION PHARMACEUTICALS
  Company Number: US-AstraZeneca-CH-00779282A

PATIENT
  Sex: Female

DRUGS (1)
  1. DAPAGLIFLOZIN [Suspect]
     Active Substance: DAPAGLIFLOZIN

REACTIONS (6)
  - Pneumothorax [Unknown]
  - Ear infection [Unknown]
  - Product use issue [Unknown]
  - Lung disorder [Unknown]
  - Renal disorder [Unknown]
  - Cardiac disorder [Unknown]
